FAERS Safety Report 11591135 (Version 2)
Quarter: 2015Q4

REPORT INFORMATION
  Report Type: Report from Study
  Country: NL (occurrence: NL)
  Receive Date: 20151003
  Receipt Date: 20151209
  Transmission Date: 20160304
  Serious: Yes (Death, Hospitalization, Other)
  Sender: FDA-Public Use
  Company Number: NL-AMGEN-NLDSL2015101220

PATIENT
  Age: 53 Year
  Sex: Female

DRUGS (3)
  1. XGEVA [Suspect]
     Active Substance: DENOSUMAB
     Dosage: UNK
     Route: 058
  2. XGEVA [Suspect]
     Active Substance: DENOSUMAB
     Indication: PROPHYLAXIS
     Dosage: 120 MG/1.7 ML, Q4WK
     Route: 058
  3. XGEVA [Suspect]
     Active Substance: DENOSUMAB
     Dosage: UNK
     Route: 058

REACTIONS (7)
  - Death [Fatal]
  - Pleural effusion [Unknown]
  - Anxiety [Not Recovered/Not Resolved]
  - Neck pain [Unknown]
  - Hospitalisation [Recovered/Resolved]
  - Musculoskeletal pain [Unknown]
  - Chemotherapy [Unknown]

NARRATIVE: CASE EVENT DATE: 20150916
